FAERS Safety Report 10394060 (Version 12)
Quarter: 2018Q3

REPORT INFORMATION
  Report Type: Spontaneous
  Country: US (occurrence: US)
  Receive Date: 20140819
  Receipt Date: 20180920
  Transmission Date: 20181010
  Serious: No
  Sender: FDA-Public Use
  Company Number: US-ACTELION-A-NJ2014-102330

PATIENT
  Age: 56 Year
  Sex: Male
  Weight: 68.27 kg

DRUGS (8)
  1. TRACLEER [Suspect]
     Active Substance: BOSENTAN
     Indication: PULMONARY HYPERTENSION
     Dosage: 62.5 MG, BID
     Route: 048
     Dates: start: 20140606
  2. LOSARTAN POTASSIUM. [Concomitant]
     Active Substance: LOSARTAN POTASSIUM
     Dosage: 25 MG, QD
  3. FAMODITINE [Concomitant]
     Active Substance: FAMOTIDINE
     Dosage: 20 MG, QD
  4. FUROSEMIDE. [Concomitant]
     Active Substance: FUROSEMIDE
     Dosage: 40 MG, BID
     Route: 048
  5. TRACLEER [Suspect]
     Active Substance: BOSENTAN
     Dosage: 125 MG, BID
     Route: 048
  6. REMODULIN [Suspect]
     Active Substance: TREPROSTINIL
     Indication: COR PULMONALE CHRONIC
     Dosage: 2.00 NG/KG, CONT INFUS
     Route: 058
     Dates: start: 20140621
  7. LEVOTHYROXINE. [Concomitant]
     Active Substance: LEVOTHYROXINE
     Dosage: 25 MG, QD
     Route: 048
  8. ADCIRCA [Concomitant]
     Active Substance: TADALAFIL

REACTIONS (23)
  - Infusion site erythema [Recovering/Resolving]
  - Infusion site nodule [Recovering/Resolving]
  - Feeling abnormal [Recovering/Resolving]
  - Fall [Unknown]
  - Erythema [Unknown]
  - Malaise [Recovering/Resolving]
  - Peripheral swelling [Unknown]
  - Infusion site swelling [Recovering/Resolving]
  - Infusion site infection [Recovering/Resolving]
  - Pyrexia [Recovered/Resolved]
  - Headache [Unknown]
  - Infusion site pain [Recovering/Resolving]
  - Vomiting [Recovered/Resolved]
  - Pain in extremity [Unknown]
  - Abdominal pain lower [Unknown]
  - Abdominal pain upper [Unknown]
  - Nasopharyngitis [Unknown]
  - Palpitations [Unknown]
  - Dry skin [Recovering/Resolving]
  - Oedema [Recovered/Resolved]
  - Pruritus [Unknown]
  - Infusion site bruising [Unknown]
  - Limb injury [Unknown]

NARRATIVE: CASE EVENT DATE: 2014
